FAERS Safety Report 12202352 (Version 1)
Quarter: 2016Q1

REPORT INFORMATION
  Report Type: Report from Study
  Country: BR (occurrence: BR)
  Receive Date: 20160322
  Receipt Date: 20160322
  Transmission Date: 20160526
  Serious: Yes (Other)
  Sender: FDA-Public Use
  Company Number: PHHY2016BR037190

PATIENT
  Sex: Female
  Weight: 75 kg

DRUGS (2)
  1. CALCIUM [Concomitant]
     Active Substance: CALCIUM
     Indication: PRODUCT USED FOR UNKNOWN INDICATION
     Route: 065
  2. ACLASTA [Suspect]
     Active Substance: ZOLEDRONIC ACID
     Indication: OSTEOPOROSIS
     Dosage: 5 MG, Q12MO
     Route: 042
     Dates: start: 20150520

REACTIONS (8)
  - Patient-device incompatibility [Unknown]
  - Influenza [Unknown]
  - Urinary tract infection [Unknown]
  - Lower limb fracture [Unknown]
  - Arthralgia [Unknown]
  - Fall [Unknown]
  - Spinal pain [Unknown]
  - Malaise [Unknown]
